FAERS Safety Report 6081712-3 (Version None)
Quarter: 2009Q1

REPORT INFORMATION
  Report Type: 
  Country: None (occurrence: None)
  Receive Date: 20090129
  Receipt Date: 20070202
  Transmission Date: 20090719
  Serious: No
  Sender: FDA-Public Use
  Company Number: EUR 186

PATIENT
  Age: 59 Year
  Sex: Female

DRUGS (4)
  1. POTASSIUM CHLORIDE 20MEQ [Suspect]
     Indication: FLUID RETENTION
     Dosage: 20 MEQ, 1 QD, PO
     Route: 048
     Dates: start: 20060801, end: 20070225
  2. POTASSIUM CHLORIDE 20MEQ [Suspect]
     Indication: FLUID RETENTION
     Dosage: 40 MEQ QD PO
     Route: 048
     Dates: start: 20060801
  3. LEVOXYL [Concomitant]
  4. LASIX [Concomitant]

REACTIONS (3)
  - DRUG INTERACTION [None]
  - HYPOAESTHESIA [None]
  - NEUROPATHY PERIPHERAL [None]
